FAERS Safety Report 9247743 (Version 1)
Quarter: 2013Q1

REPORT INFORMATION
  Report Type: Spontaneous
  Country: US (occurrence: None)
  Receive Date: 20130305
  Receipt Date: 20130305
  Transmission Date: 20140127
  Serious: Yes (Hospitalization)
  Sender: FDA-Public Use
  Company Number: 163-21880-12101482

PATIENT
  Age: 71 Year
  Sex: Female
  Weight: 81.6 kg

DRUGS (7)
  1. REVLIMID (LENALIDOMIDE) [Suspect]
     Indication: PLASMA CELL MYELOMA
     Route: 048
     Dates: start: 20120927
  2. VERAPAMIL CR [Concomitant]
  3. LORTAB (VICODIN) [Concomitant]
  4. ALBUTEROL SULFATE (SALBUTAMOL SULFATE) [Concomitant]
  5. DUONEB (COMBIVENT) [Concomitant]
  6. COUMADNI (WARFARIN SODIUM) [Concomitant]
  7. LEVAQUIN (LEVOFLOXACIN) [Concomitant]

REACTIONS (2)
  - Pulmonary embolism [None]
  - Urinary tract infection [None]
